FAERS Safety Report 7546726-2 (Version None)
Quarter: 2011Q2

REPORT INFORMATION
  Report Type: 
  Country: None (occurrence: None)
  Receive Date: 20110614
  Receipt Date: 20110606
  Transmission Date: 20111010
  Serious: Yes (Hospitalization)
  Sender: FDA-Public Use
  Company Number: A0916982A

PATIENT
  Age: 71 Year
  Sex: Male

DRUGS (5)
  1. LISINOPRIL AND HYDROCHLOROTHIAZIDE [Concomitant]
  2. ADVAIR DISKUS 100/50 [Suspect]
     Dosage: 1PUFF TWICE PER DAY
     Route: 055
  3. METHYLPREDNISOLONE [Suspect]
     Route: 042
  4. UNSPECIFIED MEDICATION [Concomitant]
  5. METFORMIN HCL [Concomitant]

REACTIONS (3)
  - FATIGUE [None]
  - ASTHMA [None]
  - PSYCHOTIC DISORDER [None]
